FAERS Safety Report 8310616-8 (Version None)
Quarter: 2012Q2

REPORT INFORMATION
  Report Type: 
  Country: None (occurrence: None)
  Receive Date: 20120425
  Receipt Date: 20120425
  Transmission Date: 20120825
  Serious: No
  Sender: FDA-Public Use
  Company Number: None

PATIENT

DRUGS (1)
  1. EQUATE OMEPRAZOLE MAGNESIUM [Suspect]

REACTIONS (2)
  - PRODUCT CONTAMINATION PHYSICAL [None]
  - PRODUCT COMMINGLING [None]
